FAERS Safety Report 9471302 (Version 1)
Quarter: 2013Q3

REPORT INFORMATION
  Report Type: Not Available
  Country: SI (occurrence: SI)
  Receive Date: 20130822
  Receipt Date: 20130822
  Transmission Date: 20140515
  Serious: Yes (Life-Threatening, Hospitalization)
  Sender: FDA-Public Use
  Company Number: SI-NAPPMUNDI-DEU-2013-0012203

PATIENT
  Age: 64 Year
  Sex: Male

DRUGS (7)
  1. SEVREDOL FILMSKO OBLOZENE TABLETE [Suspect]
     Indication: PAIN
     Dosage: 10 MG, PRN
     Route: 048
     Dates: start: 20130620, end: 20130702
  2. EPUFEN [Suspect]
     Indication: PAIN
     Dosage: 50 MCG, UNK
     Route: 062
     Dates: start: 20130701, end: 20130702
  3. ZALDIAR [Suspect]
     Indication: PAIN
     Dosage: 37.5/325 MG, TID
     Route: 048
     Dates: start: 20130620, end: 20130702
  4. NALGESIN                           /00256201/ [Concomitant]
     Dosage: 550 MG, UNK
     Route: 048
     Dates: start: 20130620
  5. NOLPAZA [Concomitant]
     Dosage: 20 MG, UNK
     Route: 048
     Dates: start: 20130620
  6. BERODUAL [Concomitant]
     Dosage: 5 MG, UNK
     Route: 055
     Dates: start: 20130620
  7. ENAP                               /00574902/ [Concomitant]
     Dosage: 5 MG, UNK

REACTIONS (5)
  - Overdose [Recovered/Resolved]
  - Constipation [Recovered/Resolved]
  - Altered state of consciousness [Recovered/Resolved]
  - Hypotension [Recovered/Resolved]
  - Hypoventilation [Recovered/Resolved]
